FAERS Safety Report 4610767-5 (Version None)
Quarter: 2005Q1

REPORT INFORMATION
  Report Type: 
  Country: None (occurrence: None)
  Receive Date: 20050301
  Receipt Date: 20041215
  Transmission Date: 20050727
  Serious: No
  Sender: FDA-Public Use
  Company Number: WAES 0412USA01930

PATIENT
  Sex: Female

DRUGS (6)
  1. ZETIA [Suspect]
     Dosage: 10 MG/DAILY/PO
     Route: 048
  2. EFFEXOR [Concomitant]
  3. NEXIUM [Concomitant]
  4. NORVASC [Concomitant]
  5. ZOCOR [Concomitant]
  6. ATENOLOL [Concomitant]

REACTIONS (1)
  - GOUT [None]
